FAERS Safety Report 14615138 (Version 2)
Quarter: 2018Q1

REPORT INFORMATION
  Report Type: Spontaneous
  Country: US (occurrence: US)
  Receive Date: 20180308
  Receipt Date: 20180316
  Transmission Date: 20180509
  Serious: Yes (Other)
  Sender: FDA-Public Use
  Company Number: US-PFIZER INC-2018091748

PATIENT
  Sex: Female
  Weight: 83.9 kg

DRUGS (1)
  1. PRISTIQ EXTENDED-RELEASE [Suspect]
     Active Substance: DESVENLAFAXINE SUCCINATE
     Indication: MENOPAUSE
     Dosage: 50 MG, 1X/DAY
     Route: 048

REACTIONS (4)
  - Vitreous floaters [Recovering/Resolving]
  - Pneumonia [Recovering/Resolving]
  - Cerebral disorder [Not Recovered/Not Resolved]
  - Body height decreased [Unknown]
